FAERS Safety Report 7588405-1 (Version None)
Quarter: 2011Q3

REPORT INFORMATION
  Report Type: 
  Country: None (occurrence: None)
  Receive Date: 20110705
  Receipt Date: 20110620
  Transmission Date: 20111222
  Serious: Yes (Other)
  Sender: FDA-Public Use
  Company Number: RU-RANBAXY-2010R3-36772

PATIENT

DRUGS (3)
  1. ARIMIDEX [Concomitant]
     Indication: BREAST CANCER
     Dosage: UNK
     Route: 065
     Dates: start: 20060101
  2. SERTRALINE HYDROCHLORIDE [Suspect]
     Indication: CANCER PAIN
     Dosage: 50 MG, QD (HALF TABLET)
     Route: 048
     Dates: start: 20100710, end: 20100808
  3. SEHYDRIN [Concomitant]
     Indication: CANCER PAIN
     Dosage: 1 TABLET 3 TIMES PER DAY
     Route: 065
     Dates: start: 20100703, end: 20100803

REACTIONS (3)
  - NEURITIS [None]
  - INSOMNIA [None]
  - MEDICATION ERROR [None]
